FAERS Safety Report 8051442-7 (Version None)
Quarter: 2012Q1

REPORT INFORMATION
  Report Type: 
  Country: None (occurrence: None)
  Receive Date: 20120117
  Receipt Date: 20120110
  Transmission Date: 20120608
  Serious: Yes (Hospitalization, Other)
  Sender: FDA-Public Use
  Company Number: US-ROCHE-793590

PATIENT
  Sex: Female
  Weight: 63.56 kg

DRUGS (2)
  1. ACCUTANE [Suspect]
     Indication: UNEVALUABLE EVENT
     Route: 065
     Dates: start: 19820101, end: 19830101
  2. ACCUTANE [Suspect]

REACTIONS (9)
  - HEPATIC ENZYME INCREASED [None]
  - INFLAMMATORY BOWEL DISEASE [None]
  - ARTHRITIS [None]
  - PANIC ATTACK [None]
  - IRRITABLE BOWEL SYNDROME [None]
  - ANAL FISTULA [None]
  - CROHN'S DISEASE [None]
  - DEPRESSION [None]
  - BLOOD CHOLESTEROL INCREASED [None]
